FAERS Safety Report 18795793 (Version 2)
Quarter: 2021Q2

REPORT INFORMATION
  Report Type: Spontaneous
  Country: US (occurrence: US)
  Receive Date: 20210127
  Receipt Date: 20210401
  Transmission Date: 20210717
  Serious: Yes (Other)
  Sender: FDA-Public Use
  Company Number: US-GLAXOSMITHKLINE-US2021GSK019264

PATIENT
  Sex: Male

DRUGS (13)
  1. ZANTAC [Suspect]
     Active Substance: RANITIDINE HYDROCHLORIDE
     Indication: COUGH
  2. RANITIDINE CAPSULE [Suspect]
     Active Substance: RANITIDINE
     Indication: COUGH
  3. RANITIDINE. [Suspect]
     Active Substance: RANITIDINE
     Indication: ASTHENIA
     Dosage: 150 MG, QD
     Route: 065
     Dates: start: 199301, end: 202003
  4. RANITIDINE. [Suspect]
     Active Substance: RANITIDINE
     Indication: ASTHENIA
     Dosage: 150 MG, QD
     Route: 065
     Dates: start: 199301, end: 202003
  5. ZANTAC [Suspect]
     Active Substance: RANITIDINE HYDROCHLORIDE
     Indication: COUGH
  6. RANITIDINE. [Suspect]
     Active Substance: RANITIDINE
     Indication: ASTHENIA
     Dosage: 150 MG, QD
     Route: 065
     Dates: start: 199301, end: 202003
  7. ZANTAC [Suspect]
     Active Substance: RANITIDINE HYDROCHLORIDE
     Indication: ASTHENIA
     Dosage: 150 MG, QD
     Route: 065
     Dates: start: 199301, end: 202003
  8. RANITIDINE CAPSULE [Suspect]
     Active Substance: RANITIDINE
     Indication: ASTHENIA
     Dosage: 150 MG, QD
     Route: 065
     Dates: start: 199301, end: 202003
  9. ZANTAC [Suspect]
     Active Substance: RANITIDINE HYDROCHLORIDE
     Indication: COUGH
     Dosage: 150 MG, QD
     Route: 065
     Dates: start: 199301, end: 202003
  10. RANITIDINE. [Suspect]
     Active Substance: RANITIDINE
     Indication: COUGH
  11. RANITIDINE. [Suspect]
     Active Substance: RANITIDINE
     Indication: COUGH
  12. ZANTAC [Suspect]
     Active Substance: RANITIDINE HYDROCHLORIDE
     Indication: ASTHENIA
     Dosage: 150 MG, QD
     Route: 065
     Dates: start: 199301, end: 202003
  13. RANITIDINE. [Suspect]
     Active Substance: RANITIDINE
     Indication: COUGH

REACTIONS (1)
  - Prostate cancer [Unknown]
